FAERS Safety Report 6609026-0 (Version None)
Quarter: 2010Q1

REPORT INFORMATION
  Report Type: 
  Country: None (occurrence: None)
  Receive Date: 20100301
  Receipt Date: 20100219
  Transmission Date: 20100710
  Serious: Yes (Death, Hospitalization)
  Sender: FDA-Public Use
  Company Number: US-AMGEN-QUU391475

PATIENT
  Sex: Male
  Weight: 121.2 kg

DRUGS (2)
  1. NPLATE [Suspect]
     Indication: IDIOPATHIC THROMBOCYTOPENIC PURPURA
     Route: 058
     Dates: start: 20090715, end: 20090923
  2. CORTICOSTEROIDS [Concomitant]

REACTIONS (5)
  - ASTHENIA [None]
  - HYPOTENSION [None]
  - POST PROCEDURAL COMPLICATION [None]
  - POST PROCEDURAL HAEMORRHAGE [None]
  - POST PROCEDURAL SEPSIS [None]
